FAERS Safety Report 18509278 (Version 5)
Quarter: 2022Q3

REPORT INFORMATION
  Report Type: Report from Study
  Country: US (occurrence: None)
  Receive Date: 20201117
  Receipt Date: 20220705
  Transmission Date: 20221027
  Serious: Yes (Death, Hospitalization, Other)
  Sender: FDA-Public Use
  Company Number: US-ROCHE-2709512

PATIENT
  Age: 59 Year
  Sex: Male
  Weight: 73.1 kg

DRUGS (7)
  1. OBINUTUZUMAB [Suspect]
     Active Substance: OBINUTUZUMAB
     Indication: Chronic lymphocytic leukaemia
     Dosage: 100 MG IV ON DAY 1, CYCLE 1?TOTAL DOSE ADMINISTERED THIS COURSE (DOSE): 420MG, LAST ADMINISTERED DAT
     Route: 042
     Dates: start: 20200512
  2. OBINUTUZUMAB [Suspect]
     Active Substance: OBINUTUZUMAB
     Dosage: 900 MG ON DAY 2, CYCLE 1
     Route: 042
  3. OBINUTUZUMAB [Suspect]
     Active Substance: OBINUTUZUMAB
     Dosage: 1000 MG IV ON DAY 8, CYCLE 1
     Route: 042
  4. OBINUTUZUMAB [Suspect]
     Active Substance: OBINUTUZUMAB
     Dosage: 1000 MG IV ON DAY 15, CYCLE 1
     Route: 042
  5. OBINUTUZUMAB [Suspect]
     Active Substance: OBINUTUZUMAB
     Dosage: 1000 MG IV ON DAY 1, CYCLE 2-6
     Route: 042
  6. VENETOCLAX [Suspect]
     Active Substance: VENETOCLAX
     Indication: Chronic lymphocytic leukaemia
     Dosage: DAYS 1-7 CYCLE 3?50 MG PO QD DAYS 8-14, CYCLE 3?100 MG PO QD DAYS 15-21, CYCLE 3?200 MG PO QD DAYS 2
     Route: 048
  7. IBRUTINIB [Suspect]
     Active Substance: IBRUTINIB
     Indication: Chronic lymphocytic leukaemia
     Dosage: ON DAYS 1-28, CYCLES 1-19?MOST RECENT DOSE PRIOR TO SAE: 15/OCT/2021 (7560 MG)
     Route: 048
     Dates: start: 20200512

REACTIONS (14)
  - Lymphocyte count increased [Recovered/Resolved]
  - Leukocytosis [Recovered/Resolved]
  - Lymphocyte count decreased [Unknown]
  - Hypoxia [Unknown]
  - COVID-19 [Unknown]
  - Pneumonia [Unknown]
  - Dyspnoea [Unknown]
  - Fatigue [Unknown]
  - Respiratory failure [Fatal]
  - Anxiety [Unknown]
  - Supraventricular tachycardia [Unknown]
  - Pulmonary embolism [Unknown]
  - Alanine aminotransferase increased [Unknown]
  - Bronchitis [Unknown]

NARRATIVE: CASE EVENT DATE: 20200512
